FAERS Safety Report 15771042 (Version 11)
Quarter: 2021Q4

REPORT INFORMATION
  Report Type: Report from Study
  Country: FR (occurrence: FR)
  Receive Date: 20181228
  Receipt Date: 20211213
  Transmission Date: 20220303
  Serious: Yes (Hospitalization, Other)
  Sender: FDA-Public Use
  Company Number: FR-PFIZER INC-2016314948

PATIENT
  Age: 68 Year
  Sex: Male
  Weight: 86 kg

DRUGS (16)
  1. SUTENT [Suspect]
     Active Substance: SUNITINIB MALATE
     Indication: Metastatic renal cell carcinoma
     Dosage: 50 MG, CYCLIC (DAILY, 4 WEEKS ON/2 WEEKS OFF)
     Dates: start: 201512
  2. SUTENT [Suspect]
     Active Substance: SUNITINIB MALATE
     Dosage: 37.5 MG, CYCLIC, ONCE DAILY
     Dates: start: 201711, end: 201712
  3. FUROSEMIDE [Concomitant]
     Active Substance: FUROSEMIDE
     Indication: Hypertension
     Dosage: UNK
     Dates: start: 201604, end: 201607
  4. ATENOLOL [Concomitant]
     Active Substance: ATENOLOL
     Indication: Hypertension
     Dosage: 50 (UNITS NOT PROVIDED)
     Dates: start: 201412, end: 201602
  5. ATENOLOL [Concomitant]
     Active Substance: ATENOLOL
     Dosage: 100 (UNITS NOT PROVIDED)
     Dates: start: 201602
  6. OMEPRAZOLE [Concomitant]
     Active Substance: OMEPRAZOLE
     Indication: Prophylaxis
     Dosage: UNK
     Dates: start: 201406, end: 201607
  7. HYDROCORTISONE [Concomitant]
     Active Substance: HYDROCORTISONE
     Indication: Adrenal insufficiency
     Dosage: UNK
     Dates: start: 201507
  8. FLUDROCORTISONE [Concomitant]
     Active Substance: FLUDROCORTISONE
     Indication: Steroid therapy
     Dosage: UNK
     Dates: start: 201507, end: 201702
  9. NICARDIPINE HYDROCHLORIDE [Concomitant]
     Active Substance: NICARDIPINE HYDROCHLORIDE
     Indication: Hypertension
     Dosage: UNK
     Dates: start: 201512
  10. IRBESARTAN [Concomitant]
     Active Substance: IRBESARTAN
     Indication: Hypertension
     Dosage: UNK
     Dates: start: 201511
  11. ESOMEPRAZOLE MAGNESIUM [Concomitant]
     Active Substance: ESOMEPRAZOLE MAGNESIUM
     Indication: Dyspepsia
     Dosage: UNK
     Dates: start: 201607
  12. LYRICA [Concomitant]
     Active Substance: PREGABALIN
     Indication: Sciatica
     Dosage: UNK
     Dates: start: 201606, end: 201607
  13. TOPALGIC [Concomitant]
     Indication: Sciatica
     Dosage: UNK
     Dates: start: 201607, end: 201608
  14. OFLOXACIN [Concomitant]
     Active Substance: OFLOXACIN
     Indication: Urinary tract infection
     Dosage: UNK
     Dates: start: 201606, end: 201607
  15. ACETAMINOPHEN [Concomitant]
     Active Substance: ACETAMINOPHEN
     Indication: Pain
     Dosage: UNK
     Dates: start: 201607, end: 201608
  16. PAZOPANIB [Concomitant]
     Active Substance: PAZOPANIB
     Indication: Renal cell carcinoma
     Dosage: UNK
     Dates: start: 201712, end: 201801

REACTIONS (10)
  - Adrenal insufficiency [Recovered/Resolved]
  - Colonic abscess [Not Recovered/Not Resolved]
  - Gastrointestinal fistula [Recovered/Resolved]
  - Gastrointestinal inflammation [Recovered/Resolved]
  - Dysgeusia [Not Recovered/Not Resolved]
  - Palmar-plantar erythrodysaesthesia syndrome [Recovered/Resolved]
  - Decreased appetite [Recovered/Resolved]
  - Phlebitis [Recovering/Resolving]
  - Hypothyroidism [Not Recovered/Not Resolved]
  - Colitis [Not Recovered/Not Resolved]

NARRATIVE: CASE EVENT DATE: 20151215
